FAERS Safety Report 6566377-6 (Version None)
Quarter: 2010Q1

REPORT INFORMATION
  Report Type: 
  Country: None (occurrence: None)
  Receive Date: 20100202
  Receipt Date: 20100129
  Transmission Date: 20100710
  Serious: Yes (Hospitalization)
  Sender: FDA-Public Use
  Company Number: FR-SANOFI-AVENTIS-2010SA005367

PATIENT
  Age: 78 Year
  Sex: Male

DRUGS (3)
  1. CLAFORAN [Suspect]
     Indication: SEPSIS
     Route: 042
     Dates: start: 20091017, end: 20091020
  2. GENTAMICIN [Suspect]
     Indication: SEPSIS
     Route: 042
     Dates: start: 20091017, end: 20091018
  3. COVERSYL /FRA/ [Concomitant]
     Dates: end: 20091021

REACTIONS (2)
  - PYREXIA [None]
  - RENAL FAILURE ACUTE [None]
